FAERS Safety Report 9009837 (Version 1)
Quarter: 2013Q1

REPORT INFORMATION
  Report Type: Spontaneous
  Country: US (occurrence: US)
  Receive Date: 20130110
  Receipt Date: 20130110
  Transmission Date: 20140127
  Serious: Yes (Other)
  Sender: FDA-Public Use
  Company Number: US-SANOFI-AVENTIS-2013SA001061

PATIENT
  Age: 52 Year
  Sex: Male

DRUGS (5)
  1. MULTAQ [Suspect]
     Indication: ATRIAL FIBRILLATION
     Route: 048
     Dates: start: 2010
  2. METOPROLOL [Concomitant]
  3. DILTIAZEM [Concomitant]
  4. DIGOXIN [Concomitant]
  5. ANTITHROMBOTIC AGENTS [Concomitant]

REACTIONS (7)
  - Atrial fibrillation [Unknown]
  - Weight increased [Unknown]
  - Oedema peripheral [Unknown]
  - Blood glucose increased [Unknown]
  - Bradycardia [Unknown]
  - Fatigue [Unknown]
  - Diarrhoea [Unknown]
